FAERS Safety Report 6089552-6 (Version None)
Quarter: 2009Q1

REPORT INFORMATION
  Report Type: 
  Country: None (occurrence: None)
  Receive Date: 20090224
  Receipt Date: 20090220
  Transmission Date: 20090719
  Serious: Yes (Death, Life-Threatening, Hospitalization, Other)
  Sender: FDA-Public Use
  Company Number: BE-SANOFI-SYNTHELABO-F01200900173

PATIENT
  Sex: Male

DRUGS (3)
  1. CLEXANE [Concomitant]
     Dosage: UNK
     Dates: start: 20090201
  2. CAPECITABINE [Suspect]
     Route: 048
     Dates: start: 20090128, end: 20090207
  3. OXALIPLATIN [Suspect]
     Indication: COLORECTAL CANCER
     Dosage: 231 MG
     Route: 041
     Dates: start: 20090128, end: 20090128

REACTIONS (4)
  - C-REACTIVE PROTEIN INCREASED [None]
  - CARDIAC ARREST [None]
  - DIARRHOEA [None]
  - NEUTROPENIA [None]
